FAERS Safety Report 10361985 (Version 4)
Quarter: 2014Q3

REPORT INFORMATION
  Report Type: Report from Study
  Country: DE (occurrence: DE)
  Receive Date: 20140805
  Receipt Date: 20140909
  Transmission Date: 20150326
  Serious: Yes (Death, Hospitalization)
  Sender: FDA-Public Use
  Company Number: PHHY2013DE159615

PATIENT
  Sex: Male

DRUGS (7)
  1. FUROSEMIDE. [Concomitant]
     Active Substance: FUROSEMIDE
     Indication: CORONARY ARTERY DISEASE
     Dosage: 120 MG
     Dates: start: 20120119
  2. ANTINEOPLASTIC AGENTS [Concomitant]
     Active Substance: UNSPECIFIED INGREDIENT
  3. ANALGESICS [Concomitant]
     Active Substance: UNSPECIFIED INGREDIENT
  4. METOPROLOL [Concomitant]
     Active Substance: METOPROLOL
     Indication: DIABETES MELLITUS
     Dosage: 500 MG
     Dates: start: 20120227
  5. AFINITOR [Suspect]
     Active Substance: EVEROLIMUS
     Indication: METASTATIC RENAL CELL CARCINOMA
     Dosage: 10 MG, ONCE PER DAY
     Route: 048
     Dates: start: 20130311, end: 20130421
  6. L-THYROXIN [Concomitant]
     Active Substance: LEVOTHYROXINE SODIUM
     Indication: HYPOTHYROIDISM
     Dosage: 50 UG
     Dates: start: 20120119
  7. ACE INHIBITOR NOS [Concomitant]
     Active Substance: UNSPECIFIED INGREDIENT
     Indication: CORONARY ARTERY DISEASE
     Dosage: 200 MG
     Dates: start: 20120119

REACTIONS (16)
  - Metastases to the mediastinum [Fatal]
  - Renal function test abnormal [Not Recovered/Not Resolved]
  - Lethargy [Unknown]
  - Pleural effusion [Not Recovered/Not Resolved]
  - Flank pain [Unknown]
  - Oedema peripheral [Not Recovered/Not Resolved]
  - Metastatic renal cell carcinoma [Fatal]
  - Metastases to lymph nodes [Fatal]
  - Computerised tomogram thorax abnormal [Unknown]
  - General physical health deterioration [Fatal]
  - Metastases to lung [Fatal]
  - Breath sounds abnormal [Unknown]
  - Malignant neoplasm progression [Fatal]
  - Hypoventilation [Unknown]
  - Wheezing [Unknown]
  - Blister [Unknown]

NARRATIVE: CASE EVENT DATE: 201304
